FAERS Safety Report 12079482 (Version 2)
Quarter: 2016Q4

REPORT INFORMATION
  Report Type: Spontaneous
  Country: JP (occurrence: JP)
  Receive Date: 20160216
  Receipt Date: 20161117
  Transmission Date: 20170206
  Serious: Yes (Hospitalization)
  Sender: FDA-Public Use
  Company Number: JP-BAYER-2015-386737

PATIENT
  Age: 51 Year
  Sex: Male
  Weight: 92.6 kg

DRUGS (11)
  1. URSO [Concomitant]
     Active Substance: URSODIOL
     Indication: HEPATIC CIRRHOSIS
     Dosage: 600 MG, QD
     Route: 048
     Dates: start: 20110905, end: 20150723
  2. NEXAVAR [Suspect]
     Active Substance: SORAFENIB
     Indication: HEPATOCELLULAR CARCINOMA
     Dosage: 400 MG, QD
     Route: 048
     Dates: start: 20150716, end: 20150722
  3. URSO [Concomitant]
     Active Substance: URSODIOL
     Indication: HYPOALBUMINAEMIA
  4. LIVACT [Concomitant]
     Active Substance: AMINO ACIDS
     Indication: HEPATIC CIRRHOSIS
     Dosage: 12.45 G, UNK
     Route: 048
     Dates: start: 20110905, end: 20150723
  5. HALCION [Concomitant]
     Active Substance: TRIAZOLAM
     Indication: INSOMNIA
     Dosage: DAILY DOSE .25 MG
     Route: 048
     Dates: start: 20110905, end: 20150723
  6. MAGLAX [Concomitant]
     Active Substance: MAGNESIUM OXIDE
     Indication: CONSTIPATION
  7. GASTER [Concomitant]
     Active Substance: FAMOTIDINE
     Indication: GASTROOESOPHAGEAL REFLUX DISEASE
     Dosage: DAILY DOSE 20 MG
     Route: 048
     Dates: start: 20110905, end: 20150723
  8. MAGLAX [Concomitant]
     Active Substance: MAGNESIUM OXIDE
     Indication: HEPATIC CIRRHOSIS
     Dosage: 990 MG, QD
     Route: 048
     Dates: start: 20110905, end: 20150723
  9. LIVACT [Concomitant]
     Active Substance: AMINO ACIDS
     Indication: HYPOALBUMINAEMIA
  10. MAGLAX [Concomitant]
     Active Substance: MAGNESIUM OXIDE
     Indication: HYPOALBUMINAEMIA
  11. LOXONIN [Suspect]
     Active Substance: LOXOPROFEN SODIUM
     Dosage: 3 DF, QD
     Route: 048

REACTIONS (1)
  - Rectal ulcer [Unknown]

NARRATIVE: CASE EVENT DATE: 20150721
